FAERS Safety Report 5385011-4 (Version None)
Quarter: 2007Q3

REPORT INFORMATION
  Report Type: 
  Country: None (occurrence: None)
  Receive Date: 20070712
  Receipt Date: 20070702
  Transmission Date: 20080115
  Serious: Yes (Other)
  Sender: FDA-Public Use
  Company Number: PHBS2007JP11194

PATIENT
  Age: 42 Year
  Sex: Female

DRUGS (2)
  1. OCTREOTIDE ACETATE [Suspect]
     Indication: ACROMEGALY
     Route: 058
  2. OCTREOTIDE ACETATE [Suspect]
     Indication: ACROMEGALY
     Dosage: 30 MG, QMO

REACTIONS (2)
  - MENINGIOMA [None]
  - OEDEMA [None]
